FAERS Safety Report 8285000-6 (Version None)
Quarter: 2012Q2

REPORT INFORMATION
  Report Type: 
  Country: None (occurrence: None)
  Receive Date: 20120413
  Receipt Date: 20110421
  Transmission Date: 20120825
  Serious: No
  Sender: FDA-Public Use
  Company Number: US-ASTRAZENECA-2011SE23388

PATIENT

DRUGS (4)
  1. PLAVIX [Interacting]
     Route: 065
  2. NEXIUM [Suspect]
     Route: 048
  3. TOPROL-XL [Concomitant]
     Route: 048
  4. CRESTOR [Concomitant]
     Route: 048

REACTIONS (1)
  - DRUG INTERACTION [None]
